FAERS Safety Report 18170330 (Version 1)
Quarter: 2020Q3

REPORT INFORMATION
  Report Type: Spontaneous
  Country: DE (occurrence: DE)
  Receive Date: 20200819
  Receipt Date: 20200819
  Transmission Date: 20201103
  Serious: Yes (Hospitalization)
  Sender: FDA-Public Use
  Company Number: DE-MYLANLABS-2020M1071225

PATIENT
  Age: 80 Year
  Sex: Male

DRUGS (8)
  1. SIMVASTATIN. [Concomitant]
     Active Substance: SIMVASTATIN
     Dosage: 40 MILLIGRAM, QD 0?0?0.5?0
  2. TAMSULOSIN [Concomitant]
     Active Substance: TAMSULOSIN
     Dosage: 0.4 MILLIGRAM, QD, 1?0?0?0
  3. ELIQUIS [Concomitant]
     Active Substance: APIXABAN
     Dosage: 5 MILLIGRAM, BID, 1?0?1?0
  4. METOPROLOL. [Suspect]
     Active Substance: METOPROLOL
     Indication: PRODUCT USED FOR UNKNOWN INDICATION
     Dosage: UNK
     Dates: end: 20200622
  5. SITAGLIPTIN [Concomitant]
     Active Substance: SITAGLIPTIN
     Dosage: 100 MILLIGRAM, QD, 1?0?0?0
  6. GLIMEPIRID [Concomitant]
     Active Substance: GLIMEPIRIDE
     Dosage: 1 MILLIGRAM, QD, 1?0?0?0
  7. METFORMIN [Concomitant]
     Active Substance: METFORMIN HYDROCHLORIDE
     Dosage: 1000 MILLIGRAM, BID, 1?0?1?0
  8. CANDESARTAN. [Concomitant]
     Active Substance: CANDESARTAN
     Dosage: 16 MILLIGRAM, BEDARF

REACTIONS (6)
  - Oedema peripheral [Unknown]
  - Weight increased [Unknown]
  - Tachycardia [Unknown]
  - Product prescribing error [Unknown]
  - Dizziness [Unknown]
  - Palpitations [Unknown]

NARRATIVE: CASE EVENT DATE: 20200622
